FAERS Safety Report 6164817-8 (Version None)
Quarter: 2009Q2

REPORT INFORMATION
  Report Type: 
  Country: None (occurrence: None)
  Receive Date: 20090423
  Receipt Date: 20090414
  Transmission Date: 20091009
  Serious: Yes (Other)
  Sender: FDA-Public Use
  Company Number: PHHY2009PH14871

PATIENT
  Sex: Male

DRUGS (2)
  1. EXFORGE [Suspect]
     Dosage: UNK
  2. RASILEZ [Suspect]
     Dosage: UNK

REACTIONS (2)
  - OEDEMA [None]
  - WEIGHT INCREASED [None]
